FAERS Safety Report 21979543 (Version 1)
Quarter: 2023Q1

REPORT INFORMATION
  Report Type: Spontaneous
  Country: US (occurrence: US)
  Receive Date: 20230210
  Receipt Date: 20230210
  Transmission Date: 20230417
  Serious: No
  Sender: FDA-Public Use
  Company Number: US-VERTEX PHARMACEUTICALS-2023-001952

PATIENT
  Age: 28 Month
  Sex: Female

DRUGS (1)
  1. ORKAMBI [Suspect]
     Active Substance: IVACAFTOR\LUMACAFTOR
     Indication: Cystic fibrosis
     Route: 048

REACTIONS (2)
  - Lipase increased [Not Recovered/Not Resolved]
  - Faecal elastase concentration decreased [Not Recovered/Not Resolved]
